FAERS Safety Report 16874183 (Version 1)
Quarter: 2019Q4

REPORT INFORMATION
  Report Type: Report from Study
  Country: US (occurrence: US)
  Receive Date: 20191001
  Receipt Date: 20191001
  Transmission Date: 20200122
  Serious: Yes (Hospitalization)
  Sender: FDA-Public Use
  Company Number: US-BAYER-2019-176926

PATIENT
  Age: 57 Year
  Sex: Female

DRUGS (2)
  1. COPANLISIB. [Suspect]
     Active Substance: COPANLISIB
     Indication: OVARIAN ENDOMETRIOID CARCINOMA
     Dosage: 60 MG
     Route: 042
     Dates: start: 20190226, end: 20190226
  2. COPANLISIB. [Suspect]
     Active Substance: COPANLISIB
     Indication: METASTASIS
     Dosage: 60 MG
     Route: 042
     Dates: start: 20190305, end: 20190305

REACTIONS (1)
  - Acute kidney injury [None]

NARRATIVE: CASE EVENT DATE: 20190315
